FAERS Safety Report 9243095 (Version 1)
Quarter: 2013Q2

REPORT INFORMATION
  Report Type: Spontaneous
  Country: LT (occurrence: LT)
  Receive Date: 20130419
  Receipt Date: 20130419
  Transmission Date: 20140414
  Serious: Yes (Life-Threatening, Hospitalization, Other)
  Sender: FDA-Public Use
  Company Number: LT-BAYER-2013-047237

PATIENT
  Age: 57 Year
  Sex: Female

DRUGS (3)
  1. ASPIRIN 100 MG [Suspect]
     Indication: ACUTE MYOCARDIAL INFARCTION
  2. CLOPIDOGREL [Concomitant]
     Indication: ACUTE MYOCARDIAL INFARCTION
  3. HEPARIN [Concomitant]
     Indication: ACUTE MYOCARDIAL INFARCTION

REACTIONS (5)
  - Cardiac valve replacement complication [None]
  - Pulmonary oedema [None]
  - Cardiogenic shock [None]
  - Cardiac arrest [None]
  - General physical health deterioration [None]
